FAERS Safety Report 8840903 (Version 1)
Quarter: 2012Q4

REPORT INFORMATION
  Report Type: 
  Country: CA (occurrence: CA)
  Receive Date: 20121015
  Receipt Date: 20121015
  Transmission Date: 20130627
  Serious: Yes (Death)
  Sender: FDA-Public Use
  Company Number: CA-B.I. PHARMACEUTICALS,INC./RIDGEFIELD-2012-CN-02108CN

PATIENT
  Age: 86 Year
  Sex: Female

DRUGS (1)
  1. PRADAX [Suspect]
     Dosage: 220 mg
     Dates: start: 201207

REACTIONS (1)
  - Myocardial infarction [Fatal]
